FAERS Safety Report 4379819-1 (Version None)
Quarter: 2004Q2

REPORT INFORMATION
  Report Type: 
  Country: None (occurrence: None)
  Receive Date: 20040614
  Receipt Date: 20040601
  Transmission Date: 20050107
  Serious: No
  Sender: FDA-Public Use
  Company Number: 2004SE03089

PATIENT
  Age: 52 Year
  Sex: Female
  Weight: 114 kg

DRUGS (1)
  1. AMIAS [Suspect]
     Indication: HYPERTENSION
     Dosage: 8 MG DAILY PO
     Route: 048
     Dates: start: 20040309, end: 20040323

REACTIONS (4)
  - DRY MOUTH [None]
  - PARAESTHESIA [None]
  - SENSATION OF FOREIGN BODY [None]
  - SWELLING FACE [None]
